FAERS Safety Report 24429344 (Version 4)
Quarter: 2025Q1

REPORT INFORMATION
  Report Type: Spontaneous
  Country: US (occurrence: US)
  Receive Date: 20241011
  Receipt Date: 20250106
  Transmission Date: 20250408
  Serious: No
  Sender: INCYTE
  Company Number: US-INCYTE CORPORATION-2024IN010261

PATIENT

DRUGS (3)
  1. OPZELURA [Suspect]
     Active Substance: RUXOLITINIB PHOSPHATE
     Indication: Vitiligo
     Dosage: UNK, BID
     Route: 061
     Dates: start: 20240724
  2. OPZELURA [Suspect]
     Active Substance: RUXOLITINIB PHOSPHATE
     Route: 061
  3. OPZELURA [Suspect]
     Active Substance: RUXOLITINIB PHOSPHATE
     Dosage: BID
     Route: 061
     Dates: start: 202408

REACTIONS (7)
  - Ocular hyperaemia [Recovered/Resolved]
  - Dry skin [Unknown]
  - Rash papular [Unknown]
  - Eye irritation [Recovered/Resolved]
  - Application site pain [Unknown]
  - Skin irritation [Unknown]
  - Accidental exposure to product [Unknown]
